FAERS Safety Report 6007301-4 (Version None)
Quarter: 2008Q4

REPORT INFORMATION
  Report Type: 
  Country: None (occurrence: None)
  Receive Date: 20081217
  Receipt Date: 20080228
  Transmission Date: 20090506
  Serious: No
  Sender: FDA-Public Use
  Company Number: US-ASTRAZENECA-2008UW04136

PATIENT
  Age: 66 Year
  Sex: Female
  Weight: 73.9 kg

DRUGS (5)
  1. CRESTOR [Suspect]
     Indication: HYPERCHOLESTEROLAEMIA
     Route: 048
     Dates: start: 20070221
  2. LEVOTHYROXINE SODIUM [Concomitant]
  3. ESTRADIOL [Concomitant]
  4. CHILDREN'S ASPIRIN [Concomitant]
  5. DOXYCYCLINE [Concomitant]

REACTIONS (4)
  - ARTHRALGIA [None]
  - DIZZINESS [None]
  - MUSCULOSKELETAL STIFFNESS [None]
  - PAIN [None]
